FAERS Safety Report 9865914 (Version 1)
Quarter: 2014Q1

REPORT INFORMATION
  Report Type: Spontaneous
  Country: US (occurrence: US)
  Receive Date: 20140203
  Receipt Date: 20140203
  Transmission Date: 20141002
  Serious: No
  Sender: FDA-Public Use
  Company Number: US-ALLERGAN-1312605US

PATIENT
  Age: 88 Year
  Sex: Male

DRUGS (3)
  1. RESTASIS [Suspect]
     Indication: DRY EYE
     Dosage: 1 DROP EACH EYE TWICE DAILY
     Route: 047
     Dates: start: 20130512, end: 201307
  2. BRIMONIDINE TARTRATE, 0.2% [Concomitant]
     Indication: GLAUCOMA
     Dosage: 1 DROP EACH EYE TWICE DAILY
     Route: 047
  3. BOTOX [Concomitant]
     Indication: BLEPHAROSPASM
     Dosage: UNK

REACTIONS (3)
  - Lacrimation increased [Recovered/Resolved]
  - Drug hypersensitivity [Recovered/Resolved]
  - Vision blurred [Recovered/Resolved]
